FAERS Safety Report 4499986-9 (Version None)
Quarter: 2004Q4

REPORT INFORMATION
  Report Type: 
  Country: None (occurrence: None)
  Receive Date: 20041112
  Receipt Date: 20041103
  Transmission Date: 20050328
  Serious: Yes (Hospitalization)
  Sender: FDA-Public Use
  Company Number: GB-MERCK-0411USA00840

PATIENT
  Age: 54 Year
  Sex: Female

DRUGS (2)
  1. MYOCHRYSINE INJECTION [Suspect]
     Indication: RHEUMATOID ARTHRITIS
     Route: 030
  2. MYOCHRYSINE INJECTION [Suspect]
     Route: 030

REACTIONS (4)
  - DIZZINESS [None]
  - NAUSEA [None]
  - PNEUMONITIS [None]
  - RASH MACULAR [None]
